FAERS Safety Report 6762271-6 (Version None)
Quarter: 2010Q2

REPORT INFORMATION
  Report Type: 
  Country: None (occurrence: None)
  Receive Date: 20100609
  Receipt Date: 20100601
  Transmission Date: 20101027
  Serious: No
  Sender: FDA-Public Use
  Company Number: FR-JNJFOC-20100502855

PATIENT
  Age: 34 Year
  Sex: Male
  Weight: 80 kg

DRUGS (1)
  1. REMICADE [Suspect]
     Indication: PSORIASIS
     Dosage: RECEIVED A TOTAL OF 15 INFUSIONS
     Route: 042

REACTIONS (1)
  - BRAIN NATRIURETIC PEPTIDE INCREASED [None]
